FAERS Safety Report 7724653-5 (Version None)
Quarter: 2011Q3

REPORT INFORMATION
  Report Type: 
  Country: None (occurrence: None)
  Receive Date: 20110901
  Receipt Date: 20110826
  Transmission Date: 20111222
  Serious: Yes (Other)
  Sender: FDA-Public Use
  Company Number: US-JNJFOC-20110813382

PATIENT
  Age: 62 Year
  Sex: Male

DRUGS (2)
  1. NICORETTE [Suspect]
     Indication: TOBACCO ABUSE
     Route: 048
     Dates: start: 20100201
  2. NICORETTE [Suspect]
     Indication: TOBACCO ABUSE
     Route: 048
     Dates: start: 20100201

REACTIONS (6)
  - DENTAL CARIES [None]
  - INTENTIONAL DRUG MISUSE [None]
  - AMNESIA [None]
  - ABNORMAL BEHAVIOUR [None]
  - NICOTINE DEPENDENCE [None]
  - DRUG ADMINISTRATION ERROR [None]
